FAERS Safety Report 13561626 (Version 2)
Quarter: 2017Q2

REPORT INFORMATION
  Report Type: Report from Study
  Country: US (occurrence: US)
  Receive Date: 20170518
  Receipt Date: 20170522
  Transmission Date: 20170830
  Serious: Yes (Death, Hospitalization)
  Sender: FDA-Public Use
  Company Number: US-ACTELION-A-NJ2016-131808

PATIENT
  Age: 82 Year
  Sex: Male
  Weight: 79.82 kg

DRUGS (4)
  1. WARFARIN [Concomitant]
     Active Substance: WARFARIN
  2. OPSUMIT [Suspect]
     Active Substance: MACITENTAN
     Indication: PULMONARY HYPERTENSION
     Dosage: 10 MG, QD
     Route: 048
     Dates: start: 20140627, end: 20170506
  3. RIOCIGUAT [Concomitant]
     Active Substance: RIOCIGUAT
  4. QUETIAPINE. [Suspect]
     Active Substance: QUETIAPINE
     Indication: PARKINSON^S DISEASE
     Dosage: UNK
     Route: 065

REACTIONS (16)
  - Fatigue [Unknown]
  - International normalised ratio increased [Unknown]
  - Memory impairment [Unknown]
  - Cataract operation [Unknown]
  - Hypersomnia [Not Recovered/Not Resolved]
  - Abnormal dreams [Unknown]
  - Weight decreased [Unknown]
  - Paranoia [Unknown]
  - Cerebral infarction [Unknown]
  - Somnolence [Unknown]
  - Parkinson^s disease [Fatal]
  - Fall [Unknown]
  - Dementia Alzheimer^s type [Unknown]
  - Pulmonary arterial hypertension [Fatal]
  - Hallucination [Unknown]
  - Tremor [Unknown]

NARRATIVE: CASE EVENT DATE: 201601
